FAERS Safety Report 9437433 (Version 2)
Quarter: 2013Q4

REPORT INFORMATION
  Report Type: Spontaneous
  Country: CA (occurrence: CA)
  Receive Date: 20130802
  Receipt Date: 20131112
  Transmission Date: 20140711
  Serious: No
  Sender: FDA-Public Use
  Company Number: CA-UCBSA-093316

PATIENT
  Age: 65 Year
  Sex: Male

DRUGS (5)
  1. VIMPAT [Suspect]
     Dosage: 400 MG/DAY
     Dates: start: 20121217, end: 20131028
  2. COVERSYL PLUS [Concomitant]
     Dosage: 4/1.25 MG
     Route: 048
  3. ASPIRIN [Concomitant]
     Route: 048
  4. MIRTAZAPINE [Concomitant]
     Route: 048
  5. CRESTOR [Concomitant]
     Route: 048

REACTIONS (1)
  - Syncope [Unknown]
